FAERS Safety Report 8124700-5 (Version None)
Quarter: 2012Q1

REPORT INFORMATION
  Report Type: 
  Country: None (occurrence: None)
  Receive Date: 20120209
  Receipt Date: 20120202
  Transmission Date: 20120608
  Serious: Yes (Hospitalization)
  Sender: FDA-Public Use
  Company Number: US-BAYER-201039513NA

PATIENT
  Age: 28 Year
  Sex: Female
  Weight: 69.388 kg

DRUGS (9)
  1. PREVACID [Concomitant]
  2. COLACE [Concomitant]
  3. YASMIN [Suspect]
     Indication: CONTRACEPTION
     Dosage: UNK UNK, UNK
     Route: 048
     Dates: start: 20030801, end: 20050401
  4. ONE A DAY [Concomitant]
     Indication: VITAMIN SUPPLEMENTATION
     Dosage: UNK UNK, QD
  5. PREDNISONE [Concomitant]
     Dosage: UNK
     Dates: start: 20050328
  6. ZYRTEC [Concomitant]
  7. LORTAB [Concomitant]
     Indication: PAIN MANAGEMENT
     Dosage: UNK
     Dates: start: 20050328
  8. YASMIN [Suspect]
     Indication: MENSTRUATION IRREGULAR
  9. IBUPROFEN [Concomitant]

REACTIONS (8)
  - FATIGUE [None]
  - MIGRAINE [None]
  - PULMONARY EMBOLISM [None]
  - DEPRESSION [None]
  - VERTIGO [None]
  - ANXIETY [None]
  - DEEP VEIN THROMBOSIS [None]
  - STRESS [None]
